FAERS Safety Report 15839966 (Version 1)
Quarter: 2019Q1

REPORT INFORMATION
  Report Type: Spontaneous
  Country: US (occurrence: US)
  Receive Date: 20190117
  Receipt Date: 20190117
  Transmission Date: 20190417
  Serious: No
  Sender: FDA-Public Use
  Company Number: US-ACTELION-A-NJ2019-184700

PATIENT
  Age: 47 Year
  Sex: Male
  Weight: 104.31 kg

DRUGS (1)
  1. UPTRAVI [Suspect]
     Active Substance: SELEXIPAG
     Indication: PULMONARY ARTERIAL HYPERTENSION
     Dosage: 1600 MCG, BID
     Route: 048

REACTIONS (5)
  - Rhinorrhoea [Unknown]
  - Productive cough [Unknown]
  - Nasopharyngitis [Unknown]
  - Cough [Unknown]
  - Respiratory tract congestion [Unknown]
